FAERS Safety Report 8255558-1 (Version None)
Quarter: 2012Q2

REPORT INFORMATION
  Report Type: 
  Country: None (occurrence: None)
  Receive Date: 20120403
  Receipt Date: 20120330
  Transmission Date: 20120825
  Serious: Yes (Life-Threatening, Hospitalization, Other)
  Sender: FDA-Public Use
  Company Number: IE-ASTRAZENECA-2012SE12187

PATIENT
  Age: 63 Year
  Sex: Male

DRUGS (2)
  1. VIMOVO [Suspect]
     Indication: PAIN
     Dosage: 500 MG NAPROXEN + 20 MG ESOMEPRAZOLE MAGNESIUM
     Route: 048
     Dates: start: 20120301
  2. STEROIDS [Concomitant]

REACTIONS (1)
  - IDIOPATHIC THROMBOCYTOPENIC PURPURA [None]
